FAERS Safety Report 5256293-4 (Version None)
Quarter: 2007Q1

REPORT INFORMATION
  Report Type: 
  Country: None (occurrence: None)
  Receive Date: 20070306
  Receipt Date: 20070220
  Transmission Date: 20070707
  Serious: Yes (Other)
  Sender: FDA-Public Use
  Company Number: CA-SOLVAY-00306004177

PATIENT

DRUGS (1)
  1. TESTOSTERONE [Suspect]
     Indication: ILL-DEFINED DISORDER
     Dosage: DAILY DOSE:  UNKNOWN
     Route: 065

REACTIONS (4)
  - DIARRHOEA [None]
  - HYPERGLYCAEMIA [None]
  - MEDICATION ERROR [None]
  - MUSCLE SPASMS [None]
